FAERS Safety Report 19139577 (Version 1)
Quarter: 2021Q2

REPORT INFORMATION
  Report Type: Spontaneous
  Country: CA (occurrence: CA)
  Receive Date: 20210415
  Receipt Date: 20210415
  Transmission Date: 20210717
  Serious: Yes (Hospitalization)
  Sender: FDA-Public Use
  Company Number: CA-PFIZER INC-2021376877

PATIENT
  Age: 71 Year
  Sex: Male

DRUGS (12)
  1. DOCETAXEL. [Suspect]
     Active Substance: DOCETAXEL
     Indication: OESOPHAGEAL CARCINOMA
  2. ATENOLOL. [Concomitant]
     Active Substance: ATENOLOL
  3. LEUCOVORIN. [Suspect]
     Active Substance: LEUCOVORIN
     Indication: OESOPHAGEAL CARCINOMA
  4. FLUOROURACIL. [Suspect]
     Active Substance: FLUOROURACIL
     Indication: OESOPHAGEAL CARCINOMA
  5. DECADRON [Concomitant]
     Active Substance: DEXAMETHASONE
  6. OXALIPLATIN. [Suspect]
     Active Substance: OXALIPLATIN
     Indication: OESOPHAGEAL CARCINOMA
  7. OXAZEPAM. [Concomitant]
     Active Substance: OXAZEPAM
  8. LANTUS [Concomitant]
     Active Substance: INSULIN GLARGINE
  9. DEXILANT [Concomitant]
     Active Substance: DEXLANSOPRAZOLE
  10. FENTANYL. [Concomitant]
     Active Substance: FENTANYL
  11. HYDROMORPHONE [Concomitant]
     Active Substance: HYDROMORPHONE
  12. LAX?A?DAY [Concomitant]
     Active Substance: POLYETHYLENE GLYCOL 3350

REACTIONS (4)
  - Asthenia [Unknown]
  - Atrial fibrillation [Unknown]
  - Back pain [Unknown]
  - Febrile neutropenia [Unknown]
